FAERS Safety Report 4400470-9 (Version None)
Quarter: 2004Q3

REPORT INFORMATION
  Report Type: 
  Country: None (occurrence: None)
  Receive Date: 20040714
  Receipt Date: 20040629
  Transmission Date: 20050211
  Serious: Yes (Hospitalization)
  Sender: FDA-Public Use
  Company Number: US_010463352

PATIENT
  Age: 61 Year
  Sex: Female
  Weight: 57 kg

DRUGS (13)
  1. FORTEO [Suspect]
     Indication: OSTEOPOROSIS
     Dosage: 20 UG/DAY
     Dates: start: 20030709
  2. SECONAL [Suspect]
     Indication: INSOMNIA
     Dosage: 200 MG/IN THE EVENING
     Dates: start: 20010327, end: 20010401
  3. XANAX [Concomitant]
  4. TYLOX [Concomitant]
  5. DARVOCET-N 100 [Concomitant]
  6. ZOLOFT [Concomitant]
  7. VITAMIN CAP [Concomitant]
  8. ADVAIR DISKUS 100/50 [Concomitant]
  9. METHYLPREDNISOLONE [Concomitant]
  10. CLARINEX [Concomitant]
  11. ATROVENT [Concomitant]
  12. SEROQUEL [Concomitant]
  13. CALCIUM [Concomitant]

REACTIONS (22)
  - ARTHRALGIA [None]
  - ASTHMA [None]
  - CHEST WALL PAIN [None]
  - CONDITION AGGRAVATED [None]
  - DIZZINESS [None]
  - DRUG INEFFECTIVE [None]
  - EAR INFECTION [None]
  - FEELING HOT [None]
  - FLUSHING [None]
  - GENERALISED ERYTHEMA [None]
  - HEADACHE [None]
  - HYPERHIDROSIS [None]
  - INCREASED TENDENCY TO BRUISE [None]
  - INJECTION SITE HAEMORRHAGE [None]
  - MUSCLE CRAMP [None]
  - MUSCLE SPASMS [None]
  - NAUSEA [None]
  - PHARMACEUTICAL PRODUCT COMPLAINT [None]
  - PHARYNGOLARYNGEAL PAIN [None]
  - PRURITUS GENERALISED [None]
  - SINUSITIS [None]
  - WEIGHT INCREASED [None]
